FAERS Safety Report 10146315 (Version 1)
Quarter: 2014Q2

REPORT INFORMATION
  Report Type: Spontaneous
  Country: US (occurrence: US)
  Receive Date: 20140501
  Receipt Date: 20140501
  Transmission Date: 20141212
  Serious: No
  Sender: FDA-Public Use
  Company Number: US-BAYER-2014-062710

PATIENT
  Age: 25 Year
  Sex: Female

DRUGS (1)
  1. MIRENA [Suspect]
     Indication: CONTRACEPTION
     Dosage: DAILY DOSE 20 ?G
     Route: 015
     Dates: start: 20090112

REACTIONS (8)
  - Rash [None]
  - Dermatitis acneiform [None]
  - Rash papular [None]
  - Migraine [None]
  - Vaginal haemorrhage [None]
  - Vaginal odour [None]
  - Dizziness [None]
  - Abdominal pain [None]
